FAERS Safety Report 7744753 (Version 2)
Quarter: 2013Q4

REPORT INFORMATION
  Report Type: Spontaneous
  Country: CA (occurrence: US)
  Receive Date: 20101230
  Receipt Date: 20131227
  Transmission Date: 20140711
  Serious: Yes (Hospitalization, Other)
  Sender: FDA-Public Use
  Company Number: US-WATSON-2010-16523

PATIENT
  Age: 20 Year
  Sex: Male

DRUGS (8)
  1. DOXYCYCLINE (WATSON LABORATORIES) [Suspect]
     Indication: TENOSYNOVITIS
     Dosage: UNK
     Route: 065
  2. DOXYCYCLINE (WATSON LABORATORIES) [Interacting]
     Indication: INFECTION PROPHYLAXIS
  3. SULFAMETHOXAZOLE-TRIMETHOPRIM (WATSON LABORATORIES) [Suspect]
     Indication: TENOSYNOVITIS
     Dosage: UNK
     Route: 065
  4. SULFAMETHOXAZOLE-TRIMETHOPRIM (WATSON LABORATORIES) [Suspect]
     Indication: INFECTION PROPHYLAXIS
  5. CEFTRIAXONE [Concomitant]
     Indication: TENOSYNOVITIS
     Dosage: SINGLE DOSE
     Route: 065
  6. CEFTRIAXONE [Concomitant]
     Indication: INFECTION PROPHYLAXIS
  7. VANCOMYCIN [Concomitant]
     Indication: TENOSYNOVITIS
     Dosage: SINGLE DOSE
     Route: 065
  8. VANCOMYCIN [Concomitant]
     Indication: INFECTION PROPHYLAXIS

REACTIONS (4)
  - Drug reaction with eosinophilia and systemic symptoms [Recovering/Resolving]
  - Human herpesvirus 6 infection [Recovering/Resolving]
  - Stevens-Johnson syndrome [Recovering/Resolving]
  - Drug interaction [Unknown]
